FAERS Safety Report 13846373 (Version 1)
Quarter: 2017Q3

REPORT INFORMATION
  Report Type: Spontaneous
  Country: US (occurrence: US)
  Receive Date: 20170808
  Receipt Date: 20170808
  Transmission Date: 20171127
  Serious: No
  Sender: FDA-Public Use
  Company Number: US-ROCHE-507510

PATIENT
  Age: 57 Year
  Sex: Female
  Weight: 49.9 kg

DRUGS (4)
  1. ECHINACEA [Concomitant]
     Active Substance: ECHINACEA, UNSPECIFIED
     Dosage: DRUG: ECHINACIA 280 MG
     Route: 065
  2. FISH OIL [Concomitant]
     Active Substance: FISH OIL
     Dosage: DRUG : FISH OIL 1300 MG
     Route: 065
  3. BONIVA [Suspect]
     Active Substance: IBANDRONATE SODIUM
     Indication: OSTEOPOROSIS
     Route: 048
  4. CALCIUM [Concomitant]
     Active Substance: CALCIUM
     Dosage: DRUG: CALCIUM 1200 MG
     Route: 065

REACTIONS (7)
  - Headache [Recovered/Resolved]
  - Diarrhoea [Unknown]
  - Bone density decreased [Unknown]
  - Pain in jaw [Unknown]
  - Dizziness [Recovering/Resolving]
  - Vertigo positional [Unknown]
  - Nausea [Recovered/Resolved]

NARRATIVE: CASE EVENT DATE: 20070522
